FAERS Safety Report 15898850 (Version 2)
Quarter: 2019Q1

REPORT INFORMATION
  Report Type: Report from Study
  Country: CA (occurrence: CA)
  Receive Date: 20190201
  Receipt Date: 20190221
  Transmission Date: 20190417
  Serious: Yes (Other)
  Sender: FDA-Public Use
  Company Number: CA-BRISTOL-MYERS SQUIBB COMPANY-BMS-2019-006527

PATIENT
  Age: 33 Year
  Sex: Male

DRUGS (3)
  1. TYLENOL [Suspect]
     Active Substance: ACETAMINOPHEN
     Indication: ARTHRALGIA
     Route: 065
  2. YERVOY [Suspect]
     Active Substance: IPILIMUMAB
     Indication: MALIGNANT MELANOMA
     Dosage: 3 MG/ML, Q3WK
     Route: 042
     Dates: start: 20181227
  3. NIVOLUMAB [Suspect]
     Active Substance: NIVOLUMAB
     Indication: MALIGNANT MELANOMA
     Dosage: 1 MG/KG, Q3WK
     Route: 042
     Dates: start: 20181227

REACTIONS (18)
  - Vertebral lesion [Not Recovered/Not Resolved]
  - Retinal disorder [Not Recovered/Not Resolved]
  - Abnormal behaviour [Unknown]
  - Diarrhoea [Recovered/Resolved]
  - Depression [Unknown]
  - Pyrexia [Unknown]
  - Night sweats [Unknown]
  - Angina pectoris [Unknown]
  - Dyspnoea [Recovered/Resolved]
  - Skin disorder [Unknown]
  - Malignant neoplasm progression [Not Recovered/Not Resolved]
  - Headache [Unknown]
  - Fatigue [Unknown]
  - Pain [Unknown]
  - Chest pain [Unknown]
  - Constipation [Recovered/Resolved]
  - Eye pain [Unknown]
  - Flushing [Unknown]

NARRATIVE: CASE EVENT DATE: 201901
